FAERS Safety Report 15210136 (Version 1)
Quarter: 2018Q3

REPORT INFORMATION
  Report Type: Report from Study
  Country: IL (occurrence: IL)
  Receive Date: 20180727
  Receipt Date: 20180727
  Transmission Date: 20181010
  Serious: Yes (Other)
  Sender: FDA-Public Use
  Company Number: IL-MYLANLABS-2018M1055762

PATIENT
  Age: 36 Year
  Sex: Female

DRUGS (1)
  1. CABERGOLINE. [Suspect]
     Active Substance: CABERGOLINE
     Indication: PROLACTIN-PRODUCING PITUITARY TUMOUR
     Route: 065

REACTIONS (3)
  - Acromegaly [Unknown]
  - Insulin-like growth factor increased [Recovered/Resolved]
  - Paradoxical drug reaction [Recovered/Resolved]
